FAERS Safety Report 4779667-4 (Version None)
Quarter: 2005Q3

REPORT INFORMATION
  Report Type: 
  Country: None (occurrence: None)
  Receive Date: 20050923
  Receipt Date: 20050913
  Transmission Date: 20060218
  Serious: Yes (Hospitalization, Other)
  Sender: FDA-Public Use
  Company Number: 2005130166

PATIENT
  Age: 44 Year
  Sex: Male

DRUGS (13)
  1. BEXTRA [Suspect]
     Indication: ARTHRALGIA
     Dosage: 40 MG (20 MG, 2 IN 1 D), ORAL
     Route: 048
     Dates: start: 20020521
  2. TRILEPAL (OXCARBAZEPINE) [Concomitant]
  3. GLUCOPHAGE (MORTFORMIN HYDROCYHLORIDE) [Concomitant]
  4. TOPROL-XL [Concomitant]
  5. AMBIEN [Concomitant]
  6. NEURONTIN [Concomitant]
  7. OXYCONTIN [Concomitant]
  8. DICLOFENAC (DICLOFENAC) [Concomitant]
  9. GLYBURIDE [Concomitant]
  10. PLAVIX [Concomitant]
  11. ACETYLSALICYLIC ACID SRT [Concomitant]
  12. ACTOS [Concomitant]
  13. WELLBUTRIN SR [Concomitant]

REACTIONS (8)
  - DEHYDRATION [None]
  - DERMATITIS EXFOLIATIVE [None]
  - DYSPHAGIA [None]
  - DYSPNOEA [None]
  - SKIN BURNING SENSATION [None]
  - SKIN IRRITATION [None]
  - STEVENS-JOHNSON SYNDROME [None]
  - STOMATITIS [None]
